FAERS Safety Report 5052199-4 (Version None)
Quarter: 2006Q3

REPORT INFORMATION
  Report Type: 
  Country: None (occurrence: None)
  Receive Date: 20060717
  Receipt Date: 20060705
  Transmission Date: 20061208
  Serious: Yes (Hospitalization)
  Sender: FDA-Public Use
  Company Number: US-JNJFOC-20060504331

PATIENT
  Sex: Male
  Weight: 75.52 kg

DRUGS (10)
  1. REMICADE [Suspect]
     Indication: PSORIATIC ARTHROPATHY
     Route: 042
  2. INH [Suspect]
     Indication: TUBERCULOSIS SKIN TEST POSITIVE
  3. ALCOHOL [Suspect]
     Indication: ALCOHOL USE
  4. LOTREL [Concomitant]
     Indication: BLOOD PRESSURE
  5. CELEBREX [Concomitant]
     Indication: PAIN
  6. DOXAZOSIN [Concomitant]
     Indication: BLOOD PRESSURE
  7. ZYRTEC-D 12 HOUR [Concomitant]
     Indication: HYPERSENSITIVITY
  8. PREDNISONE [Concomitant]
     Indication: PSORIATIC ARTHROPATHY
  9. FOLIC ACID [Concomitant]
  10. B6 [Concomitant]

REACTIONS (12)
  - DEHYDRATION [None]
  - DIARRHOEA [None]
  - DRUG INEFFECTIVE [None]
  - ERYTHEMA OF EYELID [None]
  - GASTRITIS [None]
  - LIVER FUNCTION TEST ABNORMAL [None]
  - NAUSEA [None]
  - POLYARTHRITIS [None]
  - RASH [None]
  - THROMBOCYTOPENIA [None]
  - VOMITING [None]
  - WEIGHT DECREASED [None]
